FAERS Safety Report 24840531 (Version 2)
Quarter: 2025Q1

REPORT INFORMATION
  Report Type: Spontaneous
  Country: CH (occurrence: CH)
  Receive Date: 20250114
  Receipt Date: 20250128
  Transmission Date: 20250408
  Serious: No
  Sender: ARGENX BVBA
  Company Number: CH-ARGENX-2025-ARGX-CH000384

PATIENT

DRUGS (1)
  1. VYVGART [Suspect]
     Active Substance: EFGARTIGIMOD ALFA-FCAB
     Indication: Guillain-Barre syndrome
     Route: 042
     Dates: start: 202412

REACTIONS (1)
  - Off label use [Unknown]
